FAERS Safety Report 9603510 (Version 3)
Quarter: 2013Q4

REPORT INFORMATION
  Report Type: Spontaneous
  Country: JP (occurrence: JP)
  Receive Date: 20131007
  Receipt Date: 20131231
  Transmission Date: 20140711
  Serious: Yes (Life-Threatening)
  Sender: FDA-Public Use
  Company Number: JP-ABBVIE-13P-087-1154839-00

PATIENT
  Age: 81 Year
  Sex: Male
  Weight: 34.5 kg

DRUGS (8)
  1. CLARITH [Suspect]
     Indication: PNEUMONIA BACTERIAL
     Route: 048
     Dates: start: 20130315, end: 20130324
  2. SEFIROM [Concomitant]
     Indication: INFECTION
     Route: 050
     Dates: start: 20130315, end: 20130318
  3. MEROPEN [Concomitant]
     Indication: INFECTION
     Route: 050
     Dates: start: 20130318, end: 20130325
  4. CILOSTAZOL [Concomitant]
     Indication: DISEASE COMPLICATION
     Route: 048
  5. THYRADIN-S [Concomitant]
     Indication: DISEASE COMPLICATION
     Route: 048
  6. LANSOPRAZOLE [Concomitant]
     Indication: DISEASE COMPLICATION
     Route: 048
  7. JANUVIA [Concomitant]
     Indication: DISEASE COMPLICATION
     Route: 048
  8. HUMALOG MIX [Concomitant]
     Indication: DISEASE COMPLICATION
     Route: 050

REACTIONS (2)
  - Drug ineffective [Recovering/Resolving]
  - Pneumonia bacterial [Recovering/Resolving]
